FAERS Safety Report 18505907 (Version 1)
Quarter: 2020Q4

REPORT INFORMATION
  Report Type: Spontaneous
  Country: US (occurrence: US)
  Receive Date: 20201116
  Receipt Date: 20201116
  Transmission Date: 20210114
  Serious: Yes (Other)
  Sender: FDA-Public Use
  Company Number: US-ABBVIE-20K-163-3649237-00

PATIENT
  Sex: Female

DRUGS (1)
  1. VENCLEXTA [Suspect]
     Active Substance: VENETOCLAX
     Indication: CHRONIC LYMPHOCYTIC LEUKAEMIA
     Route: 048

REACTIONS (22)
  - Surgery [Unknown]
  - Scar [Unknown]
  - Weight increased [Unknown]
  - Weight decreased [Unknown]
  - Colon cancer [Unknown]
  - Cholecystectomy [Unknown]
  - Sinusitis [Unknown]
  - Pallor [Unknown]
  - Postoperative adhesion [Unknown]
  - Respiratory disorder [Unknown]
  - Pneumonia [Recovered/Resolved]
  - Pleurisy [Unknown]
  - Cardiac disorder [Unknown]
  - Lower respiratory tract infection [Unknown]
  - Atrial fibrillation [Unknown]
  - Neoplasm malignant [Unknown]
  - Blood pressure fluctuation [Unknown]
  - Computerised tomogram abnormal [Unknown]
  - Pneumonia [Unknown]
  - Liver disorder [Unknown]
  - Arthritis [Unknown]
  - Pneumonia [Recovered/Resolved]

NARRATIVE: CASE EVENT DATE: 2019
